FAERS Safety Report 5830517-4 (Version None)
Quarter: 2008Q3

REPORT INFORMATION
  Report Type: 
  Country: None (occurrence: None)
  Receive Date: 20080801
  Receipt Date: 20070620
  Transmission Date: 20090109
  Serious: No
  Sender: FDA-Public Use
  Company Number: US-BRISTOL-MYERS SQUIBB COMPANY-13820196

PATIENT
  Age: 66 Year
  Sex: Male
  Weight: 113 kg

DRUGS (9)
  1. COUMADIN [Suspect]
     Indication: CORONARY ARTERY BYPASS
  2. COREG [Concomitant]
  3. SLO-BID [Concomitant]
  4. METFORMIN HCL [Concomitant]
  5. TIKOSYN [Concomitant]
  6. ATARAX [Concomitant]
  7. LIPITOR [Concomitant]
  8. LASIX [Concomitant]
  9. PROTONIX [Concomitant]

REACTIONS (2)
  - EPISTAXIS [None]
  - RASH MACULAR [None]
